FAERS Safety Report 8662660 (Version 2)
Quarter: 2013Q4

REPORT INFORMATION
  Report Type: Spontaneous
  Country: US (occurrence: None)
  Receive Date: 20120625
  Receipt Date: 20131106
  Transmission Date: 20140711
  Serious: Yes (Other)
  Sender: FDA-Public Use
  Company Number: 2012032627

PATIENT
  Age: 65 Year
  Sex: Female
  Weight: 53.98 kg

DRUGS (1)
  1. HIZENTRA [Suspect]
     Indication: IMMUNODEFICIENCY COMMON VARIABLE
     Dosage: (16 G 1X/WEEK, OVER 4 HOURS SUBCUTANEOUS)
     Route: 058
     Dates: start: 20120426, end: 20120614

REACTIONS (2)
  - Fat necrosis [None]
  - Abscess sterile [None]
